FAERS Safety Report 7419855-1 (Version None)
Quarter: 2011Q2

REPORT INFORMATION
  Report Type: 
  Country: None (occurrence: None)
  Receive Date: 20110418
  Receipt Date: 20110408
  Transmission Date: 20111010
  Serious: Yes (Hospitalization)
  Sender: FDA-Public Use
  Company Number: FR-TEVA-265909ISR

PATIENT
  Sex: Female
  Weight: 51 kg

DRUGS (12)
  1. DEXAMETHASONE [Suspect]
     Dates: start: 20110106, end: 20110114
  2. LENALIDOMIDE (CC-5013) [Suspect]
     Route: 048
     Dates: start: 20100106, end: 20110114
  3. PINDOLOL [Concomitant]
     Indication: HYPERTENSION
     Dosage: 10 MILLIGRAM;
     Route: 048
  4. VALACICLOVIR [Concomitant]
     Indication: PROPHYLAXIS
     Dosage: 2000 MILLIGRAM;
     Route: 048
     Dates: start: 20100621
  5. LENALIDOMIDE (CC-5013) [Suspect]
     Dates: start: 20110202
  6. DEXAMETHASONE [Suspect]
     Dates: start: 20110202
  7. PHENOXYMETHYLPENICILLIN [Concomitant]
     Indication: PROPHYLAXIS
     Dosage: 4000000 IU (INTERNATIONAL UNIT);
     Route: 048
     Dates: start: 20100629
  8. HEPARIN SODIUM [Concomitant]
     Indication: PULMONARY EMBOLISM
     Dosage: 2 ML;
     Route: 058
     Dates: start: 20100621, end: 20100720
  9. BACTRIM [Concomitant]
     Indication: INFECTION PROPHYLAXIS
     Route: 048
     Dates: start: 20100629
  10. LENALIDOMIDE (CC-5013) [Suspect]
     Indication: MULTIPLE MYELOMA
     Route: 048
     Dates: start: 20100623
  11. NADROPARIN CALCIUM [Concomitant]
     Indication: PULMONARY EMBOLISM
     Dosage: .5 ML;
     Route: 058
     Dates: start: 20100722
  12. DEXAMETHASONE [Suspect]
     Indication: MULTIPLE MYELOMA
     Dates: start: 20100623

REACTIONS (10)
  - INFUSION SITE THROMBOSIS [None]
  - RED BLOOD CELL COUNT DECREASED [None]
  - PNEUMONIA [None]
  - THERAPEUTIC RESPONSE DECREASED [None]
  - CONDITION AGGRAVATED [None]
  - HAEMOGLOBIN DECREASED [None]
  - PNEUMONIA STREPTOCOCCAL [None]
  - HYPERTENSION [None]
  - RESPIRATORY DISTRESS [None]
  - HAEMATOCRIT DECREASED [None]
